FAERS Safety Report 20733884 (Version 1)
Quarter: 2022Q2

REPORT INFORMATION
  Report Type: Spontaneous
  Country: US (occurrence: US)
  Receive Date: 20220421
  Receipt Date: 20220421
  Transmission Date: 20220721
  Serious: No
  Sender: FDA-Public Use
  Company Number: US-SAMSUNG BIOEPIS-SB-2022-07201

PATIENT

DRUGS (1)
  1. ONTRUZANT [Suspect]
     Active Substance: TRASTUZUMAB-DTTB
     Indication: Breast cancer
     Dosage: UNKNOWN
     Route: 042

REACTIONS (2)
  - Gastrooesophageal reflux disease [Unknown]
  - Product substitution issue [Unknown]
